FAERS Safety Report 4866179-2 (Version None)
Quarter: 2005Q4

REPORT INFORMATION
  Report Type: 
  Country: None (occurrence: None)
  Receive Date: 20051227
  Receipt Date: 20051129
  Transmission Date: 20060501
  Serious: Yes (Death)
  Sender: FDA-Public Use
  Company Number: PK-BRISTOL-MYERS SQUIBB COMPANY-13197363

PATIENT
  Age: 65 Year
  Sex: Male

DRUGS (2)
  1. CARBOPLATIN [Suspect]
     Indication: NON-SMALL CELL LUNG CANCER
  2. GEMZAR [Suspect]
     Indication: NON-SMALL CELL LUNG CANCER
     Route: 042

REACTIONS (1)
  - DEATH [None]
